FAERS Safety Report 12412191 (Version 1)
Quarter: 2016Q2

REPORT INFORMATION
  Report Type: Report from Study
  Country: US (occurrence: US)
  Receive Date: 20160527
  Receipt Date: 20160527
  Transmission Date: 20160815
  Serious: Yes (Other)
  Sender: FDA-Public Use
  Company Number: US-BAYER-2016-098471

PATIENT
  Age: 61 Year
  Sex: Male

DRUGS (1)
  1. NEXAVAR [Suspect]
     Active Substance: SORAFENIB
     Indication: HEPATOCELLULAR CARCINOMA
     Dosage: 400 MG, QD
     Route: 048
     Dates: start: 20160515, end: 20160517

REACTIONS (6)
  - Nausea [None]
  - Dizziness [None]
  - Diarrhoea [None]
  - Gait disturbance [None]
  - Confusional state [None]
  - Vomiting [None]

NARRATIVE: CASE EVENT DATE: 201605
